FAERS Safety Report 4364731-4 (Version None)
Quarter: 2004Q2

REPORT INFORMATION
  Report Type: 
  Country: None (occurrence: None)
  Receive Date: 20040525
  Receipt Date: 20040525
  Transmission Date: 20050107
  Serious: Yes (Other)
  Sender: FDA-Public Use
  Company Number: None

PATIENT
  Age: 92 Year
  Sex: Female
  Weight: 58.9676 kg

DRUGS (4)
  1. MEMANTINE HCL [Suspect]
     Indication: DEMENTIA ALZHEIMER'S TYPE
     Dosage: 5 MG DAILY ORAL
     Route: 048
  2. MEMANTINE HCL [Suspect]
     Dosage: 10 MG DAILY ORAL
     Route: 048
  3. OLANZEPINE [Concomitant]
  4. DONEPEZIL HCL [Concomitant]

REACTIONS (4)
  - HAEMORRHAGE [None]
  - RASH ERYTHEMATOUS [None]
  - RASH PUSTULAR [None]
  - SCAB [None]
